FAERS Safety Report 10457644 (Version 6)
Quarter: 2015Q2

REPORT INFORMATION
  Report Type: Report from Study
  Country: BE (occurrence: BE)
  Receive Date: 20140916
  Receipt Date: 20150522
  Transmission Date: 20150821
  Serious: Yes (Death, Hospitalization)
  Sender: FDA-Public Use
  Company Number: BE-009507513-1406BEL010497

PATIENT
  Age: 47 Year
  Sex: Male

DRUGS (24)
  1. NEXIAM [Concomitant]
     Active Substance: ESOMEPRAZOLE
     Indication: PROPHYLAXIS
     Dosage: 40 MG, BID, FORMULATION: PILL
     Route: 048
     Dates: start: 20131123, end: 20140511
  2. CARDIOASPIRINE [Concomitant]
     Active Substance: ASPIRIN
  3. PEMBROLIZUMAB. [Suspect]
     Active Substance: PEMBROLIZUMAB
     Indication: NON-SMALL CELL LUNG CANCER
     Dosage: 2 MG/KG, Q3W
     Route: 042
     Dates: start: 20140414, end: 20140414
  4. MS CONTIN [Concomitant]
     Active Substance: MORPHINE SULFATE
     Indication: TUMOUR PAIN
     Dosage: TOTAL DAILY DOSE 50 MG, PRN
     Route: 048
     Dates: start: 20140308, end: 20140417
  5. OXYGEN. [Concomitant]
     Active Substance: OXYGEN
     Indication: PROPHYLAXIS
     Dosage: 3 LITER DAILY, AS NEEDED
     Route: 055
     Dates: start: 20140424, end: 20140428
  6. MOVICOL [Concomitant]
     Active Substance: POLYETHYLENE GLYCOL 3350\POTASSIUM CHLORIDE\SODIUM BICARBONATE\SODIUM CHLORIDE
     Indication: CONSTIPATION
     Dosage: 1 PACKET, BID
     Route: 048
     Dates: start: 20140414, end: 20140417
  7. ESCITALOPRAM [Concomitant]
     Active Substance: ESCITALOPRAM OXALATE
     Indication: PROPHYLAXIS
     Dosage: 10 MG, QD, FORMULATION: PILL
     Route: 048
     Dates: start: 20131223
  8. ASPIRIN. [Concomitant]
     Active Substance: ASPIRIN
     Indication: TUMOUR PAIN
     Dosage: 100 MG, QD, FORMULATION: PILL
     Route: 048
     Dates: start: 20131123
  9. LASIX [Concomitant]
     Active Substance: FUROSEMIDE
     Indication: OEDEMA PERIPHERAL
     Dosage: 40 MG, QD, FORMULATION : PILL
     Route: 048
     Dates: start: 20131223, end: 20140424
  10. RIVOTRIL [Concomitant]
     Active Substance: CLONAZEPAM
     Indication: PROPHYLAXIS
     Dosage: 0.5 MG, QD, FORMULATION: PILL
     Route: 048
     Dates: start: 20131223, end: 20140424
  11. FRAXIPARINE [Concomitant]
     Active Substance: NADROPARIN CALCIUM
     Indication: PROPHYLAXIS
     Dosage: 0.4 ML, QD
     Route: 058
     Dates: start: 20140228
  12. OXYGEN. [Concomitant]
     Active Substance: OXYGEN
     Indication: PNEUMONITIS
     Dosage: UNK, PRN
     Route: 055
     Dates: start: 20131123, end: 20140423
  13. NEUROTIN (ACETYLCARNITINE HYDROCHLORIDE) [Concomitant]
     Active Substance: ACETYLCARNITINE HYDROCHLORIDE
     Indication: TUMOUR PAIN
     Dosage: UNK, PRN
     Route: 048
     Dates: start: 20140314, end: 20140424
  14. ABSTRAL [Concomitant]
     Active Substance: FENTANYL CITRATE
     Indication: TUMOUR PAIN
     Dosage: 600 MICROGRAM DAILY, PRN, FORMULATION: PILL
     Route: 060
     Dates: start: 20131123, end: 20140424
  15. MORPHINE [Concomitant]
     Active Substance: MORPHINE
     Indication: TUMOUR PAIN
     Dosage: 10 MG DAILY, AS NEEDED
     Route: 042
     Dates: start: 20140424, end: 20140505
  16. PEMBROLIZUMAB. [Suspect]
     Active Substance: PEMBROLIZUMAB
     Dosage: 2 MG/KG, Q3W
     Route: 042
     Dates: start: 20140512, end: 20140512
  17. DAFALGAN [Concomitant]
     Active Substance: ACETAMINOPHEN
     Indication: TUMOUR PAIN
     Dosage: 0.33 G, TID
     Route: 048
     Dates: start: 20131123, end: 20140424
  18. ATROVENT [Concomitant]
     Active Substance: IPRATROPIUM BROMIDE
     Indication: ASTHMA
     Dosage: 1 PUFF DAILY, AS NEEDED
     Route: 055
     Dates: start: 20140402
  19. SERETIDE [Concomitant]
     Active Substance: FLUTICASONE FUROATE\SALMETEROL XINAFOATE
     Indication: ASTHMA
     Dosage: 1 PUFF DAILY, PRN
     Route: 055
     Dates: start: 20140402, end: 20140424
  20. REDOMEX [Concomitant]
     Indication: TUMOUR PAIN
     Dosage: 75 MG DAILY, PRN FORMULATION: PILL
     Route: 048
     Dates: start: 20140308, end: 20140424
  21. SEVEDROL [Concomitant]
     Indication: TUMOUR PAIN
     Dosage: 10 MG, QD
     Route: 048
     Dates: start: 20131123
  22. DUROGESIC [Concomitant]
     Active Substance: FENTANYL
     Indication: TUMOUR PAIN
     Dosage: TOTAL DAILY DOSE: 200 MICROGRAM/HOUR, FREQUENCY REPORTED AS: OTHER
     Route: 062
     Dates: start: 20140408, end: 20140505
  23. AMOXICLAV [Concomitant]
     Active Substance: AMOXICILLIN\CLAVULANIC ACID
     Indication: PNEUMONITIS
     Dosage: 0.25 G, QID
     Route: 042
     Dates: start: 20140424, end: 20140506
  24. MS CONTIN [Concomitant]
     Active Substance: MORPHINE SULFATE
     Indication: TUMOUR PAIN
     Dosage: 30 MG, QD
     Route: 048
     Dates: start: 20140418, end: 20140427

REACTIONS (2)
  - Pneumonitis [Fatal]
  - Pneumonitis [Recovered/Resolved]

NARRATIVE: CASE EVENT DATE: 20140425
